FAERS Safety Report 6179993-0 (Version None)
Quarter: 2009Q2

REPORT INFORMATION
  Report Type: 
  Country: None (occurrence: None)
  Receive Date: 20090501
  Receipt Date: 20090421
  Transmission Date: 20091009
  Serious: Yes (Life-Threatening, Other)
  Sender: FDA-Public Use
  Company Number: MC200900139

PATIENT

DRUGS (4)
  1. ANGIOMAX [Suspect]
     Indication: CORONARY ARTERIAL STENT INSERTION
     Dosage: INTRAVENOUS
     Route: 042
     Dates: start: 20090414
  2. ANGIOMAX [Suspect]
     Indication: PERCUTANEOUS CORONARY INTERVENTION
     Dosage: INTRAVENOUS
     Route: 042
     Dates: start: 20090414
  3. ASPIRIN [Concomitant]
  4. PLAVIX [Concomitant]

REACTIONS (7)
  - CARDIAC TAMPONADE [None]
  - CARDIO-RESPIRATORY ARREST [None]
  - GINGIVAL BLEEDING [None]
  - HAEMATURIA [None]
  - INTERNATIONAL NORMALISED RATIO INCREASED [None]
  - PERICARDIAL HAEMORRHAGE [None]
  - RETROPERITONEAL HAEMORRHAGE [None]
